FAERS Safety Report 17260702 (Version 1)
Quarter: 2020Q1

REPORT INFORMATION
  Report Type: Spontaneous
  Country: US (occurrence: US)
  Receive Date: 20200113
  Receipt Date: 20200113
  Transmission Date: 20200409
  Serious: No
  Sender: FDA-Public Use
  Company Number: US-ELI_LILLY_AND_COMPANY-US202001002522

PATIENT
  Age: 51 Year
  Sex: Female

DRUGS (1)
  1. HUMALOG [Suspect]
     Active Substance: INSULIN LISPRO
     Indication: DIABETES MELLITUS
     Dosage: UNK UNK, DAILY (35-40 UNITS)
     Route: 058

REACTIONS (5)
  - Nasopharyngitis [Unknown]
  - Incorrect dose administered [Unknown]
  - Malaise [Unknown]
  - Blood glucose increased [Unknown]
  - Cough [Unknown]
